FAERS Safety Report 5071382-5 (Version None)
Quarter: 2006Q3

REPORT INFORMATION
  Report Type: 
  Country: None (occurrence: None)
  Receive Date: 20060804
  Receipt Date: 20060424
  Transmission Date: 20061208
  Serious: No
  Sender: FDA-Public Use
  Company Number: US-AMGEN-US177421

PATIENT
  Age: 74 Year
  Sex: Female

DRUGS (6)
  1. ARANESP [Suspect]
     Indication: RENAL FAILURE CHRONIC
     Route: 058
     Dates: start: 20051001
  2. COUMADIN [Concomitant]
  3. DIGOXIN [Concomitant]
  4. IRON [Concomitant]
  5. FOLIC ACID [Concomitant]
  6. ACETAMINOPHEN [Concomitant]

REACTIONS (4)
  - HYPOTENSION [None]
  - PYREXIA [None]
  - THERAPEUTIC RESPONSE DECREASED [None]
  - WEIGHT DECREASED [None]
